FAERS Safety Report 10481853 (Version 1)
Quarter: 2014Q3

REPORT INFORMATION
  Report Type: Spontaneous
  Country: IE (occurrence: IE)
  Receive Date: 20140929
  Receipt Date: 20140929
  Transmission Date: 20150326
  Serious: Yes (Hospitalization)
  Sender: FDA-Public Use
  Company Number: PHHY2014IE122119

PATIENT
  Age: 78 Year
  Sex: Male

DRUGS (2)
  1. IPRATROPIUM [Concomitant]
     Active Substance: IPRATROPIUM
     Indication: ASTHMA
  2. SALBUTAMOL [Suspect]
     Active Substance: ALBUTEROL
     Indication: ASTHMA

REACTIONS (3)
  - Lactic acidosis [Unknown]
  - Tachypnoea [Unknown]
  - Hyperlactacidaemia [Recovered/Resolved]
